FAERS Safety Report 7014373-7 (Version None)
Quarter: 2010Q3

REPORT INFORMATION
  Report Type: 
  Country: None (occurrence: None)
  Receive Date: 20100922
  Receipt Date: 20100907
  Transmission Date: 20110219
  Serious: Yes (Other)
  Sender: FDA-Public Use
  Company Number: 2010S1000333

PATIENT
  Age: 33 Year
  Sex: Female

DRUGS (2)
  1. VENLAFAXINE HCL [Suspect]
     Dosage: 225 MG; QD; PO
     Route: 048
  2. TRAZODONE (CON.) [Concomitant]

REACTIONS (2)
  - DRUG EXPOSURE DURING PREGNANCY [None]
  - PREMATURE LABOUR [None]
